FAERS Safety Report 21248924 (Version 1)
Quarter: 2022Q3

REPORT INFORMATION
  Report Type: Report from Study
  Country: US (occurrence: US)
  Receive Date: 20220824
  Receipt Date: 20220824
  Transmission Date: 20221027
  Serious: Yes (Other)
  Sender: FDA-Public Use
  Company Number: US-BRISTOL-MYERS SQUIBB COMPANY-2022-090062

PATIENT
  Age: 50 Year
  Sex: Female
  Weight: 61.235 kg

DRUGS (2)
  1. POMALYST [Suspect]
     Active Substance: POMALIDOMIDE
     Indication: Plasma cell myeloma
     Dosage: DAILY 21 DAYS
     Route: 048
     Dates: start: 2018
  2. DEXAMETHASONE [Suspect]
     Active Substance: DEXAMETHASONE
     Indication: Product used for unknown indication
     Route: 065

REACTIONS (12)
  - Blood pressure increased [Unknown]
  - Hypoaesthesia [Unknown]
  - Neck injury [Unknown]
  - Headache [Unknown]
  - Transient ischaemic attack [Unknown]
  - Dry mouth [Unknown]
  - Fatigue [Unknown]
  - Lung disorder [Unknown]
  - Abdominal pain [Unknown]
  - Palpitations [Unknown]
  - Dyspnoea [Unknown]
  - Somnolence [Unknown]

NARRATIVE: CASE EVENT DATE: 20220101
